FAERS Safety Report 6157560-2 (Version None)
Quarter: 2009Q2

REPORT INFORMATION
  Report Type: 
  Country: None (occurrence: None)
  Receive Date: 20090414
  Receipt Date: 20090404
  Transmission Date: 20091009
  Serious: Yes (Life-Threatening, Other)
  Sender: FDA-Public Use
  Company Number: 58550

PATIENT
  Sex: Female

DRUGS (3)
  1. PROPOFOL [Suspect]
     Indication: ANAESTHESIA
     Dates: start: 20020129
  2. PROPOFOL [Suspect]
     Indication: ANAESTHESIA
     Dates: start: 20070411
  3. PROPOFOL [Suspect]
     Indication: ANAESTHESIA
     Dates: start: 20070806

REACTIONS (3)
  - HEPATITIS C [None]
  - INFECTION [None]
  - PRODUCT CONTAMINATION [None]
